FAERS Safety Report 11125116 (Version 3)
Quarter: 2015Q2

REPORT INFORMATION
  Report Type: Spontaneous
  Country: JP (occurrence: JP)
  Receive Date: 20150520
  Receipt Date: 20150630
  Transmission Date: 20150821
  Serious: Yes (Hospitalization)
  Sender: FDA-Public Use
  Company Number: PHJP2015JP007604

PATIENT
  Age: 82 Year
  Sex: Female
  Weight: 59 kg

DRUGS (1)
  1. DICLOFENAC [Suspect]
     Active Substance: DICLOFENAC
     Indication: WOUND COMPLICATION
     Dosage: PRN
     Route: 054

REACTIONS (3)
  - Rectal ulcer haemorrhage [Recovering/Resolving]
  - Haemoglobin decreased [Unknown]
  - Haematochezia [Unknown]
